FAERS Safety Report 9472636 (Version 2)
Quarter: 2013Q3

REPORT INFORMATION
  Report Type: Report from Study
  Country: AT (occurrence: AT)
  Receive Date: 20130823
  Receipt Date: 20130823
  Transmission Date: 20140515
  Serious: Yes (Hospitalization, Other)
  Sender: FDA-Public Use
  Company Number: AT-ASTELLAS-2013EU004528

PATIENT
  Age: 75 Year
  Sex: Male
  Weight: 69 kg

DRUGS (4)
  1. ENZALUTAMIDE [Suspect]
     Indication: PROSTATE CANCER
     Dosage: 40 MG, QID
     Route: 048
     Dates: start: 20130404
  2. AMLODIPIN                          /00972401/ [Concomitant]
     Indication: HYPERTENSION
     Dosage: 5 MG, UID/QD
     Route: 048
  3. LISINOSTAD [Concomitant]
     Indication: HYPERTENSION
     Dosage: UNK
     Route: 048
  4. SUTRIM [Concomitant]
     Indication: PROPHYLAXIS
     Dosage: UNK
     Route: 048
     Dates: end: 20130509

REACTIONS (2)
  - Iron deficiency anaemia [Recovered/Resolved]
  - Colitis ischaemic [Unknown]
